FAERS Safety Report 10452304 (Version 1)
Quarter: 2014Q3

REPORT INFORMATION
  Report Type: Spontaneous
  Country: JP (occurrence: JP)
  Receive Date: 20140915
  Receipt Date: 20140915
  Transmission Date: 20150326
  Serious: Yes (Death, Other)
  Sender: FDA-Public Use
  Company Number: PHHY2009JP072701

PATIENT
  Age: 55 Year
  Sex: Male

DRUGS (8)
  1. GLIVEC [Suspect]
     Active Substance: IMATINIB MESYLATE
     Dosage: 400 MG, UNK
     Dates: start: 200707
  2. GLIVEC [Suspect]
     Active Substance: IMATINIB MESYLATE
     Dosage: 400 MG/DAY
     Dates: start: 200905
  3. GLIVEC [Suspect]
     Active Substance: IMATINIB MESYLATE
     Dosage: 300 MG
  4. GLIVEC [Suspect]
     Active Substance: IMATINIB MESYLATE
     Indication: GASTROINTESTINAL STROMAL TUMOUR
     Dosage: 400 MG, UNK
     Dates: start: 200511, end: 200602
  5. GLIVEC [Suspect]
     Active Substance: IMATINIB MESYLATE
     Dosage: 800 MG, UNK
     Dates: start: 200708
  6. GLIVEC [Suspect]
     Active Substance: IMATINIB MESYLATE
     Dosage: 400 MG, UNK
     Dates: start: 200712
  7. NILOTINIB [Suspect]
     Active Substance: NILOTINIB
     Dosage: UNK UKN, UNK
     Dates: start: 200903, end: 200905
  8. SUNITINIB [Suspect]
     Active Substance: SUNITINIB
     Dosage: 50 MG PER DAY
     Dates: start: 200809

REACTIONS (8)
  - Pain [Unknown]
  - Metastases to liver [Unknown]
  - Malaise [Unknown]
  - Abdominal distension [Unknown]
  - Anaemia [Unknown]
  - Death [Fatal]
  - Systemic mycosis [Unknown]
  - Pyrexia [Unknown]
